FAERS Safety Report 6340234-2 (Version None)
Quarter: 2009Q3

REPORT INFORMATION
  Report Type: 
  Country: None (occurrence: None)
  Receive Date: 20090902
  Receipt Date: 20090826
  Transmission Date: 20100115
  Serious: Yes (Hospitalization, Other)
  Sender: FDA-Public Use
  Company Number: JPI-P-008393

PATIENT
  Age: 44 Year
  Sex: Female
  Weight: 47.1741 kg

DRUGS (6)
  1. XYREM [Suspect]
     Indication: FIBROMYALGIA
     Dosage: 4.5 GM (2.25 GM, 2 IN 1 D), ORAL; 6 GM (3 GM, 2 IN 1 D), ORAL
     Dates: start: 20090813, end: 20090817
  2. XYREM [Suspect]
     Indication: FIBROMYALGIA
     Dosage: 4.5 GM (2.25 GM, 2 IN 1 D), ORAL; 6 GM (3 GM, 2 IN 1 D), ORAL
     Dates: start: 20090818, end: 20090820
  3. SPIRONOLACTONE [Concomitant]
  4. LEVOTHYROXINE SODIUM [Concomitant]
  5. SUMATRIPTAN SUCCINATE [Concomitant]
  6. TERBINAFINE HCL [Concomitant]

REACTIONS (3)
  - NAUSEA [None]
  - PAIN [None]
  - STAPHYLOCOCCAL INFECTION [None]
